FAERS Safety Report 21791816 (Version 2)
Quarter: 2023Q1

REPORT INFORMATION
  Report Type: Report from Study
  Country: US (occurrence: US)
  Receive Date: 20221229
  Receipt Date: 20230323
  Transmission Date: 20230418
  Serious: No
  Sender: FDA-Public Use
  Company Number: US-ABBVIE-4206613

PATIENT
  Age: 62 Year

DRUGS (5)
  1. SKYRIZI [Suspect]
     Active Substance: RISANKIZUMAB-RZAA
     Indication: Psoriasis
     Dosage: FORM STRENGTH 150MG/ML
     Route: 058
     Dates: start: 202102
  2. BETAMETHASONE [Concomitant]
     Active Substance: BETAMETHASONE
     Indication: Psoriasis
     Route: 061
  3. Covid-19 vaccine [Concomitant]
     Indication: COVID-19 immunisation
     Route: 030
  4. TRIAMCINOLONE [Concomitant]
     Active Substance: TRIAMCINOLONE
     Indication: Psoriasis
     Route: 061
  5. TRULICITY [Concomitant]
     Active Substance: DULAGLUTIDE
     Indication: Diabetes mellitus

REACTIONS (1)
  - Psoriasis [Recovering/Resolving]

NARRATIVE: CASE EVENT DATE: 20221101
